FAERS Safety Report 9688418 (Version 1)
Quarter: 2013Q4

REPORT INFORMATION
  Report Type: Report from Study
  Country: US (occurrence: US)
  Receive Date: 20131114
  Receipt Date: 20131114
  Transmission Date: 20140711
  Serious: Yes (Hospitalization)
  Sender: FDA-Public Use
  Company Number: US-ROCHE-1302488

PATIENT
  Age: 9 Year
  Sex: Male
  Weight: 66.74 kg

DRUGS (1)
  1. XOLAIR [Suspect]
     Indication: ASTHMA
     Route: 065
     Dates: start: 2012

REACTIONS (2)
  - Asthma [Not Recovered/Not Resolved]
  - Off label use [Unknown]
